FAERS Safety Report 7992948-6 (Version None)
Quarter: 2011Q4

REPORT INFORMATION
  Report Type: 
  Country: None (occurrence: None)
  Receive Date: 20111219
  Receipt Date: 20110112
  Transmission Date: 20120403
  Serious: No
  Sender: FDA-Public Use
  Company Number: US-ASTRAZENECA-2011SE02054

PATIENT
  Age: 62 Year
  Sex: Female

DRUGS (3)
  1. BENICAR [Concomitant]
  2. ZETIA [Concomitant]
  3. CRESTOR [Suspect]
     Indication: HYPERTENSION
     Route: 048
     Dates: start: 20040101, end: 20100501

REACTIONS (3)
  - WEIGHT DECREASED [None]
  - COELIAC DISEASE [None]
  - BLOOD CHOLESTEROL INCREASED [None]
